FAERS Safety Report 12388379 (Version 3)
Quarter: 2019Q4

REPORT INFORMATION
  Report Type: Spontaneous
  Country: CZ (occurrence: CZ)
  Receive Date: 20160520
  Receipt Date: 20191128
  Transmission Date: 20200122
  Serious: Yes (Other)
  Sender: FDA-Public Use
  Company Number: PHHY2016CZ057966

PATIENT
  Age: 37 Year
  Sex: Male
  Weight: 118 kg

DRUGS (8)
  1. SANDIMMUN NEORAL [Suspect]
     Active Substance: CYCLOSPORINE
     Indication: PSORIASIS
     Dosage: UNK
     Route: 065
  2. MEDROL [Suspect]
     Active Substance: METHYLPREDNISOLONE
     Indication: PSORIATIC ARTHROPATHY
  3. INSULIN [Concomitant]
     Active Substance: INSULIN NOS
     Indication: DIABETES MELLITUS
     Dosage: UNK
     Route: 065
  4. METHOTREXATE SODIUM. [Suspect]
     Active Substance: METHOTREXATE SODIUM
     Indication: PSORIATIC ARTHROPATHY
     Dosage: UNK
     Route: 065
  5. METHOTREXATE SODIUM. [Suspect]
     Active Substance: METHOTREXATE SODIUM
     Indication: ARTHRITIS
  6. MEDROL [Suspect]
     Active Substance: METHYLPREDNISOLONE
     Indication: PSORIASIS
     Dosage: UNK (LOW DOSE)
     Route: 065
  7. SANDIMMUN NEORAL [Suspect]
     Active Substance: CYCLOSPORINE
     Indication: PSORIATIC ARTHROPATHY
  8. METHOTREXATE SODIUM. [Suspect]
     Active Substance: METHOTREXATE SODIUM
     Indication: PSORIASIS

REACTIONS (5)
  - Intention tremor [Unknown]
  - Disease progression [Unknown]
  - Hepatotoxicity [Unknown]
  - Hepatic steatosis [Unknown]
  - Postural tremor [Unknown]
